FAERS Safety Report 4303695-6 (Version None)
Quarter: 2004Q1

REPORT INFORMATION
  Report Type: 
  Country: None (occurrence: None)
  Receive Date: 20040223
  Receipt Date: 20040213
  Transmission Date: 20041129
  Serious: Yes (Disabling)
  Sender: FDA-Public Use
  Company Number: 200410526GDS

PATIENT
  Age: 32 Year
  Sex: Male

DRUGS (4)
  1. CIPROFLOXACIN [Suspect]
     Indication: OSTEOMYELITIS
     Dosage: 750 MG, BID, ORAL
     Route: 048
     Dates: start: 20020415, end: 20020715
  2. CEFAZOLIN SODIUM [Suspect]
     Indication: OSTEOMYELITIS
     Dosage: 2 G, TID, INTRAVENOUS
     Route: 042
     Dates: start: 20020423, end: 20020715
  3. CLEXANE ( HEPARIN-FRACTION, SODIUM SALT) [Suspect]
     Indication: INJURY
     Dosage: 4000 IU, TOTAL DAILY, SUBCUTANEOUS
     Route: 058
     Dates: start: 20020415, end: 20020715
  4. CLEXANE ( HEPARIN-FRACTION, SODIUM SALT) [Suspect]
     Indication: MUSCULOSKELETAL DISORDER
     Dosage: 4000 IU, TOTAL DAILY, SUBCUTANEOUS
     Route: 058
     Dates: start: 20020415, end: 20020715

REACTIONS (1)
  - TOOTH LOSS [None]
